FAERS Safety Report 4633795-2 (Version None)
Quarter: 2005Q2

REPORT INFORMATION
  Report Type: 
  Country: None (occurrence: None)
  Receive Date: 20050412
  Receipt Date: 20050412
  Transmission Date: 20051028
  Serious: Yes (Life-Threatening)
  Sender: FDA-Public Use
  Company Number: None

PATIENT
  Age: 38 Year
  Sex: Male
  Weight: 58 kg

DRUGS (15)
  1. ZYVOX [Suspect]
     Indication: STAPHYLOCOCCAL SEPSIS
     Dosage: 600 MG Q 12 HRS INTRAVENOUS
     Route: 042
     Dates: start: 20050105, end: 20050124
  2. ZYVOX [Suspect]
     Indication: WOUND INFECTION
     Dosage: 600 MG Q 12 HRS INTRAVENOUS
     Route: 042
     Dates: start: 20050105, end: 20050124
  3. ALBUMIN (HUMAN) [Concomitant]
  4. IBUPROFEN [Concomitant]
  5. AMIODARONE HCL [Concomitant]
  6. TOBRAMYCIN [Concomitant]
  7. ASPIRIN [Concomitant]
  8. FUROSEMIDE [Concomitant]
  9. RIFAMPIN [Concomitant]
  10. CALCIUM CHLORIDE [Concomitant]
  11. VANCOMYCIN CHEST TUBE IRRIGATION [Concomitant]
  12. LACTULOSE [Concomitant]
  13. POTASSIUM CHLORIDE [Concomitant]
  14. APAP TAB [Concomitant]
  15. MORPHINE [Concomitant]

REACTIONS (4)
  - BLOODY DISCHARGE [None]
  - HAEMORRHAGE [None]
  - PULMONARY HAEMORRHAGE [None]
  - SUPRAVENTRICULAR TACHYCARDIA [None]
